FAERS Safety Report 24794867 (Version 1)
Quarter: 2024Q4

REPORT INFORMATION
  Report Type: Spontaneous
  Country: US (occurrence: None)
  Receive Date: 20241231
  Receipt Date: 20241231
  Transmission Date: 20250115
  Serious: Yes (Death)
  Sender: Public
  Company Number: None

PATIENT
  Age: 84 Year
  Sex: Male

DRUGS (11)
  1. PIFELTRO [Suspect]
     Active Substance: DORAVIRINE
     Indication: HIV infection
     Dosage: 100 MG DAILY ORAL
     Route: 048
     Dates: start: 202403, end: 202412
  2. ASPIRIN [Concomitant]
     Active Substance: ASPIRIN
  3. COLCHICINE [Concomitant]
     Active Substance: COLCHICINE
  4. NITROGLYCERIN [Concomitant]
     Active Substance: NITROGLYCERIN
  5. OMEPRAZOLE [Concomitant]
     Active Substance: OMEPRAZOLE
  6. LISINOPRIL [Concomitant]
     Active Substance: LISINOPRIL
  7. CARVEDILOL [Concomitant]
     Active Substance: CARVEDILOL
  8. DONEPEZIL [Concomitant]
     Active Substance: DONEPEZIL
  9. Januiva [Concomitant]
  10. Memantiine [Concomitant]
  11. TAMSULOSIN [Concomitant]
     Active Substance: TAMSULOSIN

REACTIONS (1)
  - Death [None]

NARRATIVE: CASE EVENT DATE: 20241222
